FAERS Safety Report 10052060 (Version 2)
Quarter: 2014Q2

REPORT INFORMATION
  Report Type: Spontaneous
  Country: JP (occurrence: JP)
  Receive Date: 20140402
  Receipt Date: 20140430
  Transmission Date: 20141212
  Serious: No
  Sender: FDA-Public Use
  Company Number: JP-BRISTOL-MYERS SQUIBB COMPANY-20578498

PATIENT
  Age: 6 Decade
  Sex: Male

DRUGS (1)
  1. VEPESID INJ [Suspect]
     Indication: SMALL CELL LUNG CANCER
     Route: 041

REACTIONS (1)
  - Injection site erythema [Recovering/Resolving]
